FAERS Safety Report 6935133-9 (Version None)
Quarter: 2010Q3

REPORT INFORMATION
  Report Type: 
  Country: None (occurrence: None)
  Receive Date: 20100822
  Receipt Date: 20100813
  Transmission Date: 20110219
  Serious: Yes (Death, Hospitalization)
  Sender: FDA-Public Use
  Company Number: PHHY2010IE52427

PATIENT
  Sex: Female

DRUGS (4)
  1. DIOVAN HCT [Suspect]
     Dosage: UNK
  2. CALCIUM CHANNEL BLOCKERS [Concomitant]
  3. IDEOS [Concomitant]
  4. ONE-ALPHA [Concomitant]

REACTIONS (7)
  - ASTHENIA [None]
  - BLOOD CHLORIDE DECREASED [None]
  - DECREASED APPETITE [None]
  - HYPONATRAEMIA [None]
  - LETHARGY [None]
  - NEUTROPHIL COUNT INCREASED [None]
  - WHITE BLOOD CELL COUNT INCREASED [None]
